FAERS Safety Report 19109067 (Version 1)
Quarter: 2021Q2

REPORT INFORMATION
  Report Type: Spontaneous
  Country: DE (occurrence: DE)
  Receive Date: 20210408
  Receipt Date: 20210408
  Transmission Date: 20210717
  Serious: Yes (Hospitalization, Other)
  Sender: FDA-Public Use
  Company Number: DE-PFIZER INC-2021141288

PATIENT
  Age: 9 Decade
  Sex: Male

DRUGS (1)
  1. METHOTREXATE SODIUM. [Suspect]
     Active Substance: METHOTREXATE SODIUM
     Dosage: 10 MG DAILY EXCEPT FRIDAY

REACTIONS (3)
  - Myelosuppression [Unknown]
  - Leukopenia [Unknown]
  - Accidental overdose [Unknown]
